FAERS Safety Report 6173360-1 (Version None)
Quarter: 2009Q2

REPORT INFORMATION
  Report Type: 
  Country: None (occurrence: None)
  Receive Date: 20090424
  Receipt Date: 20090113
  Transmission Date: 20091009
  Serious: No
  Sender: FDA-Public Use
  Company Number: ALL1-2009-00084

PATIENT
  Age: 11 Year
  Sex: Male
  Weight: 71.2 kg

DRUGS (4)
  1. VYVANSE [Suspect]
     Indication: ATTENTION DEFICIT/HYPERACTIVITY DISORDER
     Dosage: 50 MG, 1X/DAY:QD, ORAL ; 40 MG, 1X/DAY:QD, ORAL; 50 MG, 1XDAY QD, ORAL
     Route: 048
     Dates: start: 20080901, end: 20081001
  2. VYVANSE [Suspect]
     Indication: ATTENTION DEFICIT/HYPERACTIVITY DISORDER
     Dosage: 50 MG, 1X/DAY:QD, ORAL ; 40 MG, 1X/DAY:QD, ORAL; 50 MG, 1XDAY QD, ORAL
     Route: 048
     Dates: start: 20081001, end: 20090107
  3. VYVANSE [Suspect]
     Indication: ATTENTION DEFICIT/HYPERACTIVITY DISORDER
     Dosage: 50 MG, 1X/DAY:QD, ORAL ; 40 MG, 1X/DAY:QD, ORAL; 50 MG, 1XDAY QD, ORAL
     Route: 048
     Dates: start: 20090108
  4. ZOLOFT [Concomitant]

REACTIONS (4)
  - DISTURBANCE IN ATTENTION [None]
  - FATIGUE [None]
  - INSOMNIA [None]
  - RESPIRATORY TRACT INFECTION [None]
